FAERS Safety Report 5532204-9 (Version None)
Quarter: 2007Q4

REPORT INFORMATION
  Report Type: 
  Country: None (occurrence: None)
  Receive Date: 20071128
  Receipt Date: 20071120
  Transmission Date: 20080405
  Serious: Yes (Hospitalization, Other)
  Sender: FDA-Public Use
  Company Number: 17867

PATIENT
  Age: 62 Year
  Sex: Male

DRUGS (15)
  1. METHOTREXATE [Suspect]
     Indication: RHEUMATOID ARTHRITIS
  2. METHOTREXATE [Suspect]
     Indication: RHEUMATOID ARTHRITIS
     Dosage: 22.5 MG WEEKLY IM
     Route: 030
  3. METHOTREXATE [Suspect]
     Indication: RHEUMATOID ARTHRITIS
     Dosage: 22.5 MG WEEKLY IM
     Route: 030
  4. ETANERCEPT [Concomitant]
  5. NITROGLYCERIN [Concomitant]
  6. PREDNISONE [Concomitant]
  7. SIMVASTATIN [Concomitant]
  8. DILTIAZEM [Concomitant]
  9. HYDROCHLOROTHIAZIDE [Concomitant]
  10. RAMIPRIL [Concomitant]
  11. LEVOTHYROXINE SODIUM [Concomitant]
  12. ASPIRIN [Concomitant]
  13. ATENOLOL [Concomitant]
  14. CALCIUM CARBONATE [Concomitant]
  15. RANITIDINE HCL [Concomitant]

REACTIONS (4)
  - HEPATIC ENZYME INCREASED [None]
  - MENINGITIS ASEPTIC [None]
  - NO THERAPEUTIC RESPONSE [None]
  - TENOSYNOVITIS [None]
